FAERS Safety Report 5046082-8 (Version None)
Quarter: 2006Q3

REPORT INFORMATION
  Report Type: 
  Country: None (occurrence: None)
  Receive Date: 20060710
  Receipt Date: 20060313
  Transmission Date: 20061208
  Serious: Yes (Hospitalization)
  Sender: FDA-Public Use
  Company Number: DK-AVENTIS-200612462GDDC

PATIENT
  Age: 54 Year
  Sex: Female
  Weight: 61 kg

DRUGS (7)
  1. LANTUS [Suspect]
     Indication: DIABETES MELLITUS
     Route: 058
     Dates: start: 20051104
  2. PAIN-KILLERS [Suspect]
  3. NOVORAPID [Concomitant]
     Dates: start: 20041012
  4. METHADONE HCL [Concomitant]
  5. LORAZEPAM [Concomitant]
  6. OXYCODONE HCL [Concomitant]
  7. TRAMADOLE [Concomitant]

REACTIONS (3)
  - DIARRHOEA [None]
  - HYPERGLYCAEMIA [None]
  - VOMITING [None]
